FAERS Safety Report 23152851 (Version 1)
Quarter: 2023Q4

REPORT INFORMATION
  Report Type: Spontaneous
  Country: CN (occurrence: CN)
  Receive Date: 20231107
  Receipt Date: 20231107
  Transmission Date: 20240110
  Serious: Yes (Hospitalization, Other)
  Sender: FDA-Public Use
  Company Number: CN-STRIDES ARCOLAB LIMITED-2023SP016593

PATIENT
  Sex: Female

DRUGS (7)
  1. PREDNISOLONE [Suspect]
     Active Substance: PREDNISOLONE
     Indication: Product used for unknown indication
     Dosage: UNK; PATIENT MOTHER RECEIVED PREDNISONE DURING FIRST PREGNANCY
     Route: 064
  2. PREDNISOLONE [Suspect]
     Active Substance: PREDNISOLONE
     Dosage: UNK; PATIENT MOTHER RECEIVED PREDNISONE 50MG EVERY DAY DURING SECOND PREGNANCY
     Route: 064
  3. TACROLIMUS [Suspect]
     Active Substance: TACROLIMUS
     Indication: Product used for unknown indication
     Dosage: UNK; PATIENT MOTHER RECEIVED TACROLIMUS 1.5MG TWO TIMES A DAY
     Route: 064
  4. BELIMUMAB [Suspect]
     Active Substance: BELIMUMAB
     Indication: Product used for unknown indication
     Dosage: UNK; PATIENT MOTHER RECEIVED BELIMUMAB 10 MG/KG
     Route: 064
  5. HYDROXYCHLOROQUINE [Suspect]
     Active Substance: HYDROXYCHLOROQUINE
     Indication: Product used for unknown indication
     Dosage: UNK; PATIENT MOTHER RECEIVED HYDROXYCHLOROQUINE 200MG TWO TIMES A DAY
     Route: 064
  6. ASPIRIN [Suspect]
     Active Substance: ASPIRIN
     Indication: Product used for unknown indication
     Dosage: UNK; PATIENT^S MOTHER RECEIVED ASPIRIN 50MG EVERY DAY
     Route: 064
  7. PROPYLTHIOURACIL [Suspect]
     Active Substance: PROPYLTHIOURACIL
     Indication: Product used for unknown indication
     Dosage: UNK; PATIENT MOTHER RECEIVED PROPYLTHIOURACIL
     Route: 064

REACTIONS (2)
  - Foetal distress syndrome [Unknown]
  - Foetal exposure during pregnancy [Unknown]
